FAERS Safety Report 11816032 (Version 1)
Quarter: 2015Q4

REPORT INFORMATION
  Report Type: Spontaneous
  Country: US (occurrence: US)
  Receive Date: 20151209
  Receipt Date: 20151209
  Transmission Date: 20160305
  Serious: No
  Sender: FDA-Public Use
  Company Number: US-GALDERMA-US15002389

PATIENT
  Age: 39 Year
  Sex: Female

DRUGS (4)
  1. METROGEL [Suspect]
     Active Substance: METRONIDAZOLE
     Indication: ROSACEA
     Dosage: 0.75%
     Route: 061
     Dates: end: 20150401
  2. METROGEL [Suspect]
     Active Substance: METRONIDAZOLE
     Indication: DERMATITIS
  3. ELIDEL (PIMECROLIMUS) CREAM, 1% [Concomitant]
     Indication: DERMATITIS
  4. ELIDEL (PIMECROLIMUS) CREAM, 1% [Concomitant]
     Indication: ROSACEA
     Dosage: 1%
     Route: 061
     Dates: end: 20150401

REACTIONS (2)
  - Off label use [Recovered/Resolved]
  - Drug ineffective for unapproved indication [Unknown]

NARRATIVE: CASE EVENT DATE: 20150402
